FAERS Safety Report 24226376 (Version 1)
Quarter: 2024Q3

REPORT INFORMATION
  Report Type: Spontaneous
  Country: JP (occurrence: JP)
  Receive Date: 20240820
  Receipt Date: 20240820
  Transmission Date: 20241017
  Serious: Yes (Hospitalization)
  Sender: Haleon PLC
  Company Number: JP-HALEON-2192244

PATIENT
  Age: 53 Year
  Sex: Male

DRUGS (2)
  1. NICOTINELL [Suspect]
     Active Substance: NICOTINE
     Indication: Smoking cessation therapy
     Dosage: TIME INTERVAL: AS NECESSARY
  2. NICOTINELL [Suspect]
     Active Substance: NICOTINE

REACTIONS (2)
  - Hospitalisation [Unknown]
  - Wrong patient received product [Unknown]
